FAERS Safety Report 7044188-5 (Version None)
Quarter: 2010Q4

REPORT INFORMATION
  Report Type: 
  Country: None (occurrence: None)
  Receive Date: 20101013
  Receipt Date: 20101008
  Transmission Date: 20110411
  Serious: No
  Sender: FDA-Public Use
  Company Number: US-PFIZER INC-2010127926

PATIENT
  Sex: Male
  Weight: 81.633 kg

DRUGS (3)
  1. ZITHROMAX [Suspect]
     Indication: LYMPHADENOPATHY
     Dosage: UNK, 250MG, TWO TABLETS DAILY
     Route: 048
     Dates: start: 20101006
  2. ZITHROMAX [Suspect]
     Indication: PHARYNGITIS
  3. ZYRTEC [Concomitant]
     Indication: HYPERSENSITIVITY
     Dosage: UNK, 10MG, DAILY

REACTIONS (2)
  - INSOMNIA [None]
  - PRURITUS GENERALISED [None]
